FAERS Safety Report 14822846 (Version 2)
Quarter: 2020Q1

REPORT INFORMATION
  Report Type: Spontaneous
  Country: CA (occurrence: CA)
  Receive Date: 20180427
  Receipt Date: 20200117
  Transmission Date: 20200409
  Serious: Yes (Other)
  Sender: FDA-Public Use
  Company Number: CA-SA-2018SA050076

PATIENT
  Age: 55 Year
  Sex: Female

DRUGS (2)
  1. LEFLUNOMIDE. [Suspect]
     Active Substance: LEFLUNOMIDE
     Dosage: UNK UNK,UNK
     Route: 048
  2. METHOTREXATE. [Suspect]
     Active Substance: METHOTREXATE
     Dosage: 25 MG,QW
     Route: 058

REACTIONS (9)
  - Nasopharyngitis [Unknown]
  - Diarrhoea [Unknown]
  - Influenza [Unknown]
  - Pneumonia [Unknown]
  - Cough [Unknown]
  - Aphonia [Unknown]
  - Pain [Unknown]
  - Bronchitis [Unknown]
  - Pyrexia [Unknown]
